FAERS Safety Report 9007342 (Version 1)
Quarter: 2013Q1

REPORT INFORMATION
  Report Type: Spontaneous
  Country: US (occurrence: US)
  Receive Date: 20130110
  Receipt Date: 20130110
  Transmission Date: 20140127
  Serious: Yes (Death, Hospitalization, Other)
  Sender: FDA-Public Use
  Company Number: US-PFIZER INC-2013005923

PATIENT
  Age: 49 Year
  Sex: Male

DRUGS (7)
  1. VENLAFAXINE HYDROCHLORIDE [Suspect]
     Dosage: 400 PILLS OF 75 MG VENLAFAXINE EXTENDED RELEASE
     Route: 048
  2. SIMVASTATIN [Concomitant]
  3. LITHIUM [Concomitant]
  4. RISPERIDONE [Concomitant]
  5. MIRTAZAPINE [Concomitant]
  6. TRAZODONE [Concomitant]
  7. LOSARTAN [Concomitant]

REACTIONS (4)
  - Completed suicide [Fatal]
  - Cardiogenic shock [Fatal]
  - Convulsion [Fatal]
  - Ileus [Fatal]
